FAERS Safety Report 26128951 (Version 1)
Quarter: 2025Q4

REPORT INFORMATION
  Report Type: Spontaneous
  Country: EU (occurrence: EU)
  Receive Date: 20251208
  Receipt Date: 20251208
  Transmission Date: 20260117
  Serious: Yes (Other)
  Sender: SANOFI AVENTIS
  Company Number: None

PATIENT
  Age: 1 Month
  Sex: Male
  Weight: 4.31 kg

DRUGS (2)
  1. BEYFORTUS [Suspect]
     Active Substance: NIRSEVIMAB-ALIP
     Dosage: UNK
     Dates: start: 20251010, end: 20251010
  2. CHOLECALCIFEROL [Concomitant]
     Active Substance: CHOLECALCIFEROL
     Dosage: 1X1 DROP

REACTIONS (2)
  - Extrapyramidal disorder [Unknown]
  - Dyskinesia [Unknown]

NARRATIVE: CASE EVENT DATE: 20251010
